FAERS Safety Report 11119584 (Version 1)
Quarter: 2015Q2

REPORT INFORMATION
  Report Type: Report from Study
  Country: BR (occurrence: BR)
  Receive Date: 20150518
  Receipt Date: 20150518
  Transmission Date: 20150821
  Serious: Yes (Other)
  Sender: FDA-Public Use
  Company Number: BR-GLAXOSMITHKLINE-BR2015GSK062030

PATIENT
  Sex: Female

DRUGS (8)
  1. FLUTICASONE FUROATE + VILANTEROL TRIFENATATE [Suspect]
     Active Substance: FLUTICASONE FUROATE\VILANTEROL TRIFENATATE
     Indication: ASTHMATIC CRISIS
     Dosage: 1 PUFF(S), QD (200/25MCG )
     Route: 055
     Dates: start: 20150101, end: 20150104
  2. SPIRIVA (TIOTROPIUM) [Concomitant]
     Indication: ASTHMA
  3. FLIXOTIDE DISKUS [Concomitant]
     Active Substance: FLUTICASONE PROPIONATE
     Indication: BRONCHITIS
  4. SPIRIVA (TIOTROPIUM) [Concomitant]
     Indication: BRONCHITIS
     Dosage: UNK
     Dates: start: 20150101
  5. ATROVENT [Concomitant]
     Active Substance: IPRATROPIUM BROMIDE
     Indication: BRONCHITIS
     Dosage: UNK
     Dates: start: 20150101
  6. FLIXOTIDE DISKUS [Concomitant]
     Active Substance: FLUTICASONE PROPIONATE
     Indication: ASTHMA
  7. FLUTICASONE FUROATE + VILANTEROL TRIFENATATE [Suspect]
     Active Substance: FLUTICASONE FUROATE\VILANTEROL TRIFENATATE
     Indication: BRONCHITIS
     Dosage: (100/25)
     Dates: start: 20150406
  8. ATROVENT [Concomitant]
     Active Substance: IPRATROPIUM BROMIDE
     Indication: ASTHMA

REACTIONS (4)
  - Asthmatic crisis [Recovered/Resolved]
  - Bronchitis [Recovered/Resolved]
  - Drug ineffective [Recovered/Resolved]
  - Dysphonia [Not Recovered/Not Resolved]

NARRATIVE: CASE EVENT DATE: 20150101
